FAERS Safety Report 8422471-6 (Version None)
Quarter: 2012Q2

REPORT INFORMATION
  Report Type: 
  Country: None (occurrence: None)
  Receive Date: 20120608
  Receipt Date: 20120528
  Transmission Date: 20120825
  Serious: Yes (Other)
  Sender: FDA-Public Use
  Company Number: JP-VERTEX PHARMACEUTICALS INC.-AE-2012-007907

PATIENT
  Age: 69 Year
  Sex: Male

DRUGS (7)
  1. OLEMETEC [Concomitant]
     Route: 048
  2. TRICHLORMETHIAZIDE [Concomitant]
     Route: 048
  3. REBETOL [Concomitant]
     Indication: HEPATITIS C
     Route: 048
     Dates: start: 20120403, end: 20120416
  4. TELAVIC (TELAPREVIR) [Suspect]
     Indication: HEPATITIS C
     Route: 048
     Dates: start: 20120403, end: 20120517
  5. REBETOL [Concomitant]
     Route: 048
     Dates: start: 20120417, end: 20120501
  6. PEG-INTRON [Concomitant]
     Indication: HEPATITIS C
     Route: 058
     Dates: start: 20120403
  7. REBETOL [Concomitant]
     Route: 048
     Dates: start: 20120501

REACTIONS (6)
  - PRURITUS [None]
  - PYREXIA [None]
  - HYPERURICAEMIA [None]
  - RASH GENERALISED [None]
  - RASH [None]
  - ERYTHEMA [None]
